FAERS Safety Report 22251969 (Version 1)
Quarter: 2023Q2

REPORT INFORMATION
  Report Type: Spontaneous
  Country: CN (occurrence: CN)
  Receive Date: 20230425
  Receipt Date: 20230425
  Transmission Date: 20230721
  Serious: Yes (Death, Other)
  Sender: FDA-Public Use
  Company Number: CN-STRIDES ARCOLAB LIMITED-2023SP005887

PATIENT
  Sex: Female

DRUGS (5)
  1. ETOPOSIDE [Suspect]
     Active Substance: ETOPOSIDE
     Indication: Small cell lung cancer
     Dosage: UNK, PART OF EP REGIMEN- 6 CYCLES RECEIVED
     Route: 065
  2. CISPLATIN [Suspect]
     Active Substance: CISPLATIN
     Indication: Small cell lung cancer
     Dosage: UNK, PART OF EP REGIMEN- 6 CYCLES RECEIVED
     Route: 065
  3. IODINE I-125 [Suspect]
     Active Substance: IODINE I-125
     Indication: Small cell lung cancer
     Dosage: 110 GRAY (RADIOACTIVE SEEDS)
     Route: 036
  4. CODEINE [Suspect]
     Active Substance: CODEINE
     Indication: Cough
     Dosage: UNK
     Route: 065
  5. LIDOCAINE [Suspect]
     Active Substance: LIDOCAINE
     Indication: Local anaesthesia
     Dosage: UNK, LOCAL INFILTRATION
     Route: 065

REACTIONS (3)
  - Death [Fatal]
  - Myelosuppression [Unknown]
  - Drug ineffective [Unknown]
